FAERS Safety Report 15895286 (Version 1)
Quarter: 2019Q1

REPORT INFORMATION
  Report Type: Spontaneous
  Country: US (occurrence: US)
  Receive Date: 20190131
  Receipt Date: 20190131
  Transmission Date: 20190417
  Serious: No
  Sender: FDA-Public Use
  Company Number: US-BAYER-2019-022468

PATIENT
  Age: 88 Year
  Sex: Female
  Weight: 83 kg

DRUGS (5)
  1. HIGH BLOOD PRESSURURE [Concomitant]
  2. MIRALAX [Suspect]
     Active Substance: POLYETHYLENE GLYCOL 3350
     Indication: CONSTIPATION
     Dosage: 1/2 DOSE , QD
     Route: 048
     Dates: start: 201901
  3. VITAMIN D [Concomitant]
     Active Substance: CHOLECALCIFEROL
  4. CHOLESTEROL [Concomitant]
     Active Substance: CHOLESTEROL
  5. CALCIUM [Concomitant]
     Active Substance: CALCIUM

REACTIONS (4)
  - Underdose [Unknown]
  - Product use issue [Unknown]
  - Product use in unapproved indication [Unknown]
  - Incorrect product administration duration [None]
